FAERS Safety Report 25383904 (Version 2)
Quarter: 2025Q3

REPORT INFORMATION
  Report Type: Report from Study
  Country: TR (occurrence: TR)
  Receive Date: 20250602
  Receipt Date: 20250818
  Transmission Date: 20251021
  Serious: Yes (Hospitalization)
  Sender: ABBVIE
  Company Number: TR-ABBVIE-6301252

PATIENT
  Age: 51 Year
  Sex: Female

DRUGS (5)
  1. CARBIDOPA\LEVODOPA [Suspect]
     Active Substance: CARBIDOPA\LEVODOPA
     Indication: Parkinson^s disease
     Route: 050
     Dates: start: 20210216, end: 20250523
  2. CARBIDOPA\LEVODOPA [Suspect]
     Active Substance: CARBIDOPA\LEVODOPA
     Route: 050
  3. AMANTADINE SULFATE [Concomitant]
     Active Substance: AMANTADINE SULFATE
     Indication: Parkinson^s disease
     Dosage: 200 MILLIGRAM, FORM STRENGTH 100 MG
     Route: 048
     Dates: start: 2021
  4. PRAMIPEXOLE DIHYDROCHLORIDE [Concomitant]
     Active Substance: PRAMIPEXOLE DIHYDROCHLORIDE
     Indication: Parkinson^s disease
     Dosage: 3 MILLIGRAM, FORM STRENGTH 3 MG
     Route: 048
     Dates: start: 2015
  5. BENSERAZIDE HYDROCHLORIDE\LEVODOPA [Concomitant]
     Active Substance: BENSERAZIDE HYDROCHLORIDE\LEVODOPA
     Indication: Parkinson^s disease
     Dosage: 125 MILLIGRAM/ HBS, FORM STRENGTH 125 MG
     Route: 048
     Dates: start: 2012

REACTIONS (3)
  - Perforation [Recovered/Resolved]
  - Abdominal pain upper [Recovered/Resolved]
  - Jejunal perforation [Recovered/Resolved]

NARRATIVE: CASE EVENT DATE: 20250523
